FAERS Safety Report 17962324 (Version 1)
Quarter: 2020Q2

REPORT INFORMATION
  Report Type: Spontaneous
  Country: US (occurrence: US)
  Receive Date: 20200629
  Receipt Date: 20200629
  Transmission Date: 20200714
  Serious: Yes (Hospitalization)
  Sender: FDA-Public Use
  Company Number: None

PATIENT
  Age: 57 Year
  Sex: Female

DRUGS (21)
  1. CLOPIDOGREL [Concomitant]
     Active Substance: CLOPIDOGREL BISULFATE
  2. HYDROCHLOROT [Concomitant]
     Active Substance: HYDROCHLOROTHIAZIDE
  3. NYSTATIN. [Concomitant]
     Active Substance: NYSTATIN
  4. CIPROFLOXACIN. [Concomitant]
     Active Substance: CIPROFLOXACIN
  5. CLOTRIMAZOLE. [Concomitant]
     Active Substance: CLOTRIMAZOLE
  6. TRAMADOL HCL [Concomitant]
     Active Substance: TRAMADOL HYDROCHLORIDE
  7. REPATHA [Suspect]
     Active Substance: EVOLOCUMAB
     Dosage: ?          OTHER FREQUENCY:Q14D;?
     Route: 058
     Dates: start: 20200327
  8. AMOX/K CLAV [Concomitant]
     Active Substance: AMOXICILLIN\CLAVULANATE POTASSIUM
  9. LISINOPRIL AND HYDROCHLOROTHIAZIDE [Concomitant]
     Active Substance: HYDROCHLOROTHIAZIDE\LISINOPRIL
  10. METRONIDAZOL [Concomitant]
     Active Substance: METRONIDAZOLE
  11. NAPROXEN. [Concomitant]
     Active Substance: NAPROXEN
  12. METOPROL TAR [Concomitant]
  13. SMZ/TMP DS [Concomitant]
     Active Substance: SULFAMETHOXAZOLE\TRIMETHOPRIM
  14. AMOXICILLIN. [Concomitant]
     Active Substance: AMOXICILLIN
  15. LISINOPRIL. [Concomitant]
     Active Substance: LISINOPRIL
  16. ALPRAZOLAM. [Concomitant]
     Active Substance: ALPRAZOLAM
  17. ATENOLOL. [Concomitant]
     Active Substance: ATENOLOL
  18. METHYLPRED [Concomitant]
     Active Substance: METHYLPREDNISOLONE
  19. ASPIRIN. [Concomitant]
     Active Substance: ASPIRIN
  20. NITROGLYCERIN. [Concomitant]
     Active Substance: NITROGLYCERIN
  21. VALACYCLOVIR [Concomitant]
     Active Substance: VALACYCLOVIR HYDROCHLORIDE

REACTIONS (2)
  - Hypoglycaemia [None]
  - Weight decreased [None]

NARRATIVE: CASE EVENT DATE: 20200626
